FAERS Safety Report 6657231-X (Version None)
Quarter: 2010Q1

REPORT INFORMATION
  Report Type: 
  Country: None (occurrence: None)
  Receive Date: 20100330
  Receipt Date: 20100319
  Transmission Date: 20100710
  Serious: Yes (Hospitalization, Other)
  Sender: FDA-Public Use
  Company Number: US-NOVOPROD-305949

PATIENT
  Sex: Female

DRUGS (2)
  1. NOVOLOG [Suspect]
     Indication: TYPE 1 DIABETES MELLITUS
     Dosage: SLIDING SCALE
     Route: 058
     Dates: start: 20070101
  2. HUMULIN N [Concomitant]
     Indication: TYPE 1 DIABETES MELLITUS
     Dosage: 45 IU, QD (25 IU AM, 20 IU HS)
     Route: 058

REACTIONS (2)
  - DIABETIC KETOACIDOSIS [None]
  - NEPHRITIS [None]
